FAERS Safety Report 9417812 (Version 1)
Quarter: 2013Q3

REPORT INFORMATION
  Report Type: Spontaneous
  Country: DE (occurrence: DE)
  Receive Date: 20130724
  Receipt Date: 20130724
  Transmission Date: 20140515
  Serious: Yes (Congenital Anomaly)
  Sender: FDA-Public Use
  Company Number: DE-GLAXOSMITHKLINE-D0080543A

PATIENT
  Sex: 0

DRUGS (1)
  1. CEFUHEXAL [Suspect]
     Indication: SINUSITIS
     Dosage: 500MG UNKNOWN
     Route: 064

REACTIONS (4)
  - Amniotic band syndrome [Not Recovered/Not Resolved]
  - Limb reduction defect [Not Recovered/Not Resolved]
  - Congenital hand malformation [Not Recovered/Not Resolved]
  - Foetal exposure during pregnancy [Unknown]
